FAERS Safety Report 4743467-1 (Version None)
Quarter: 2005Q3

REPORT INFORMATION
  Report Type: 
  Country: None (occurrence: None)
  Receive Date: 20050809
  Receipt Date: 20050727
  Transmission Date: 20060218
  Serious: Yes (Other)
  Sender: FDA-Public Use
  Company Number: 2005US001005

PATIENT
  Age: 37 Year
  Sex: Female

DRUGS (2)
  1. AMBISOME [Suspect]
     Indication: PNEUMONIA ASPERGILLUS
     Dosage: 1.00 MG/KG UID/QD IV NOS
     Route: 042
     Dates: start: 20050712, end: 20050712
  2. ANTIBIOTICS [Concomitant]

REACTIONS (3)
  - BACK PAIN [None]
  - INFUSION RELATED REACTION [None]
  - MUSCULOSKELETAL STIFFNESS [None]
